FAERS Safety Report 9370750 (Version 1)
Quarter: 2013Q2

REPORT INFORMATION
  Report Type: Spontaneous
  Country: CA (occurrence: CA)
  Receive Date: 20130626
  Receipt Date: 20130626
  Transmission Date: 20140414
  Serious: Yes (Other)
  Sender: FDA-Public Use
  Company Number: CA-TEVA-415431USA

PATIENT
  Age: 2 Year
  Sex: Female
  Weight: 12 kg

DRUGS (6)
  1. ETOPOSIDE INJECTION USP [Suspect]
     Dosage: 150 MG/M2 DAILY;
     Route: 042
  2. CYTARABINE INJECTION [Suspect]
     Dosage: 2000 MG/M2 DAILY;
     Route: 042
  3. DEXAMETHASONE [Concomitant]
  4. FLUCONAZOLE [Concomitant]
  5. ONDANSETRON [Concomitant]
  6. SEPTRA INJECTION [Concomitant]
     Route: 042

REACTIONS (4)
  - Erythema [Unknown]
  - Hypersensitivity [Unknown]
  - Skin reaction [Unknown]
  - Swelling [Unknown]
